FAERS Safety Report 24544423 (Version 2)
Quarter: 2025Q1

REPORT INFORMATION
  Report Type: Spontaneous
  Country: RU (occurrence: RU)
  Receive Date: 20241024
  Receipt Date: 20250116
  Transmission Date: 20250409
  Serious: Yes (Other)
  Sender: SAREPTA THERAPEUTICS
  Company Number: RU-SAREPTA THERAPEUTICS INC.-SRP2024-005185

PATIENT

DRUGS (2)
  1. ELEVIDYS [Suspect]
     Active Substance: DELANDISTROGENE MOXEPARVOVEC-ROKL
     Indication: Product used for unknown indication
     Route: 042
     Dates: start: 20240823
  2. Captopril per os [Concomitant]
     Indication: Product used for unknown indication
     Dates: start: 20240901, end: 20240926

REACTIONS (6)
  - Drug-induced liver injury [Unknown]
  - Asthenia [Unknown]
  - Hepatitis [Unknown]
  - Alanine aminotransferase increased [Unknown]
  - Gamma-glutamyltransferase increased [Unknown]
  - Blood bilirubin increased [Unknown]
